FAERS Safety Report 5739499-7 (Version None)
Quarter: 2008Q2

REPORT INFORMATION
  Report Type: 
  Country: None (occurrence: None)
  Receive Date: 20080515
  Receipt Date: 20080508
  Transmission Date: 20081010
  Serious: Yes (Other)
  Sender: FDA-Public Use
  Company Number: PHHY2008BR07742

PATIENT
  Sex: Male

DRUGS (1)
  1. TOFRANIL [Suspect]
     Indication: URINARY INCONTINENCE
     Dosage: 25 MG, 1 TAB BEFORE SLEEPING
     Route: 048
     Dates: start: 20080201, end: 20080427

REACTIONS (18)
  - ANOREXIA [None]
  - ASTHENIA [None]
  - CONFUSIONAL STATE [None]
  - CONSTIPATION [None]
  - DISORIENTATION [None]
  - DRY MOUTH [None]
  - HYPERGLYCAEMIA [None]
  - LEUKOPENIA [None]
  - MENTAL DISORDER [None]
  - NERVOUS SYSTEM DISORDER [None]
  - OEDEMA PERIPHERAL [None]
  - ORTHOSTATIC HYPOTENSION [None]
  - SLEEP DISORDER [None]
  - SOMNOLENCE [None]
  - THROMBOCYTOPENIA [None]
  - TINNITUS [None]
  - TRANSIENT ISCHAEMIC ATTACK [None]
  - TREMOR [None]
